FAERS Safety Report 12351397 (Version 1)
Quarter: 2016Q2

REPORT INFORMATION
  Report Type: Spontaneous
  Country: None (occurrence: None)
  Receive Date: 20160509
  Receipt Date: 20160509
  Transmission Date: 20160815
  Serious: No
  Sender: FDA-Public Use
  Company Number: None

PATIENT
  Age: 45 Year
  Sex: Male
  Weight: 86.18 kg

DRUGS (1)
  1. LIDOCAINE 5% [Suspect]
     Active Substance: LIDOCAINE
     Indication: PARAESTHESIA
     Route: 061
     Dates: start: 20160504, end: 20160505

REACTIONS (3)
  - Product quality issue [None]
  - Drug ineffective [None]
  - Product counterfeit [None]

NARRATIVE: CASE EVENT DATE: 20160505
